FAERS Safety Report 10266739 (Version 2)
Quarter: 2015Q1

REPORT INFORMATION
  Report Type: Spontaneous
  Country: GB (occurrence: GB)
  Receive Date: 20140630
  Receipt Date: 20150302
  Transmission Date: 20150720
  Serious: Yes (Other)
  Sender: FDA-Public Use
  Company Number: GB-ACCORD-024417

PATIENT
  Age: 60 Year
  Sex: Male
  Weight: 91 kg

DRUGS (18)
  1. CANAGLIFLOZIN [Concomitant]
     Active Substance: CANAGLIFLOZIN
  2. OMEPRAZOLE. [Concomitant]
     Active Substance: OMEPRAZOLE
  3. NOVORAPID [Concomitant]
     Active Substance: INSULIN ASPART
  4. RAMIPRIL. [Concomitant]
     Active Substance: RAMIPRIL
  5. DIGOXIN. [Concomitant]
     Active Substance: DIGOXIN
  6. TRAMADOL/TRAMADOL HYDROCHLORIDE [Suspect]
     Active Substance: TRAMADOL HYDROCHLORIDE
     Indication: PAIN
     Dosage: DOSAGE TEXT: 1-2 THREE TIMES A DAY
     Route: 048
     Dates: start: 2000, end: 20140606
  7. DICLOFENAC [Concomitant]
     Active Substance: DICLOFENAC
  8. SALMETEROL [Concomitant]
     Active Substance: SALMETEROL
  9. DOXAZOSIN [Concomitant]
     Active Substance: DOXAZOSIN\DOXAZOSIN MESYLATE
  10. LANTUS [Concomitant]
     Active Substance: INSULIN GLARGINE
  11. SALBUTAMOL [Concomitant]
     Active Substance: ALBUTEROL
     Route: 055
  12. DABIGATRAN/DABIGATRAN ETEXILATE [Concomitant]
  13. BEZAFIBRATE [Concomitant]
     Active Substance: BEZAFIBRATE
  14. TIOTROPIUM/TIOTROPIUM BROMIDE [Concomitant]
     Route: 055
  15. CLENIL MODULITE [Concomitant]
     Active Substance: BECLOMETHASONE DIPROPIONATE
     Dosage: INHALERS
  16. DAPAGLIFLOZIN [Concomitant]
     Active Substance: DAPAGLIFLOZIN
  17. ISOSORBIDE [Concomitant]
     Active Substance: ISOSORBIDE
  18. FLECAINIDE [Concomitant]
     Active Substance: FLECAINIDE

REACTIONS (4)
  - Drug interaction [None]
  - Blister [Recovered/Resolved]
  - Self-injurious ideation [Recovered/Resolved]
  - Depressed mood [Recovered/Resolved]

NARRATIVE: CASE EVENT DATE: 20140501
